FAERS Safety Report 8227554-1 (Version None)
Quarter: 2012Q1

REPORT INFORMATION
  Report Type: 
  Country: None (occurrence: None)
  Receive Date: 20120322
  Receipt Date: 20120315
  Transmission Date: 20120608
  Serious: Yes (Other)
  Sender: FDA-Public Use
  Company Number: US-ABBOTT-12P-163-0915844-00

PATIENT
  Sex: Male
  Weight: 83.99 kg

DRUGS (7)
  1. HUMIRA [Suspect]
     Indication: PSORIATIC ARTHROPATHY
     Dates: start: 20090101, end: 20100901
  2. AMLODIPINE [Concomitant]
     Indication: HYPERTENSION
  3. HUMIRA [Suspect]
     Dates: start: 20101201
  4. ZOCOR [Concomitant]
     Indication: BLOOD CHOLESTEROL INCREASED
  5. METHOTREXATE [Concomitant]
     Indication: PSORIATIC ARTHROPATHY
  6. PREDNISONE TAB [Concomitant]
     Indication: PSORIATIC ARTHROPATHY
  7. FOLIC ACID [Concomitant]
     Indication: PSORIATIC ARTHROPATHY

REACTIONS (4)
  - DACRYOSTENOSIS ACQUIRED [None]
  - NASOPHARYNGITIS [None]
  - SINUS CONGESTION [None]
  - COUGH [None]
